FAERS Safety Report 6938942-5 (Version None)
Quarter: 2010Q3

REPORT INFORMATION
  Report Type: 
  Country: None (occurrence: None)
  Receive Date: 20100824
  Receipt Date: 20100816
  Transmission Date: 20110219
  Serious: Yes (Hospitalization, Other)
  Sender: FDA-Public Use
  Company Number: US-ALEXION-A201000839

PATIENT
  Sex: Female

DRUGS (14)
  1. SOLIRIS [Suspect]
     Indication: PAROXYSMAL NOCTURNAL HAEMOGLOBINURIA
     Dosage: 900 MG, Q2W
     Route: 042
  2. COUMADIN [Suspect]
     Indication: ATRIAL FIBRILLATION
     Route: 048
  3. AMIODARONE [Concomitant]
     Indication: ATRIAL FIBRILLATION
     Dosage: 200 MG, QD
     Route: 048
     Dates: start: 20100426
  4. VICODIN [Concomitant]
     Indication: PAIN
     Dosage: 1-2 TABS, Q6H, PRN
     Route: 048
  5. LEXAPRO [Concomitant]
     Route: 048
  6. PRILOSEC [Concomitant]
     Dosage: 20 MG, UNK
     Route: 048
  7. LANTUS [Concomitant]
     Dosage: 50 IU, QD (QHS)
     Route: 058
  8. NORVASC [Concomitant]
     Dosage: 5 MG, QD
     Route: 048
  9. GLUCOPHAGE [Concomitant]
     Dosage: 500 MG, BID (BEFORE BREAKFAST AND DINNER)
     Route: 048
  10. FOLIC ACID [Concomitant]
     Dosage: 1 MG, QD
     Route: 048
  11. NOVOLOG [Concomitant]
     Dosage: 12 IU, TID WITH MEALS
     Route: 058
  12. NOVOLOG [Concomitant]
     Dosage: BEFORE BREAKFAST
     Route: 058
  13. LISINOPRIL [Concomitant]
     Dosage: 10 MG, QD
     Route: 048
  14. ASPIRIN [Concomitant]
     Dosage: 81 MG, QD
     Route: 048

REACTIONS (3)
  - BRONCHITIS [None]
  - CHEST DISCOMFORT [None]
  - EPISTAXIS [None]
